FAERS Safety Report 6735521-X (Version None)
Quarter: 2010Q2

REPORT INFORMATION
  Report Type: 
  Country: None (occurrence: None)
  Receive Date: 20100519
  Receipt Date: 20100505
  Transmission Date: 20101027
  Serious: Yes (Hospitalization)
  Sender: FDA-Public Use
  Company Number: 010630

PATIENT
  Sex: Male
  Weight: 31.5 kg

DRUGS (5)
  1. CERTOLIZUMAB PEGOL (CERTOLIZUMAB PEGOL) [Suspect]
     Indication: CROHN'S DISEASE
     Dosage: (200 MG 1X/2 WEEKS SUBCUTANEOUS)
     Route: 058
     Dates: start: 20100216, end: 20100316
  2. IMURAN [Concomitant]
  3. MERCAPTOPURINE [Concomitant]
  4. MULTIVITAMIN /01229101/ [Concomitant]
  5. PANADOL /00020001/ [Concomitant]

REACTIONS (16)
  - BLOOD ALBUMIN DECREASED [None]
  - BLOOD CALCIUM DECREASED [None]
  - BLOOD CREATININE DECREASED [None]
  - CONDITION AGGRAVATED [None]
  - COUGH [None]
  - CROHN'S DISEASE [None]
  - CYTOMEGALOVIRUS TEST POSITIVE [None]
  - DIARRHOEA [None]
  - GASTRITIS EROSIVE [None]
  - IRON DEFICIENCY [None]
  - OESOPHAGITIS [None]
  - TRANSFERRIN DECREASED [None]
  - TRANSFERRIN SATURATION DECREASED [None]
  - UPPER RESPIRATORY TRACT INFECTION [None]
  - VIRAL INFECTION [None]
  - WEIGHT DECREASED [None]
